FAERS Safety Report 16768302 (Version 1)
Quarter: 2019Q3

REPORT INFORMATION
  Report Type: Spontaneous
  Country: US (occurrence: US)
  Receive Date: 20190715
  Receipt Date: 20190715
  Transmission Date: 20191005
  Serious: No
  Sender: FDA-Public Use
  Company Number: None

PATIENT
  Sex: Male

DRUGS (3)
  1. LOSARTAN POT TAB [Concomitant]
  2. HYDRALAZINE TAB [Concomitant]
  3. CABOMETYX [Suspect]
     Active Substance: CABOZANTINIB S-MALATE
     Indication: NEOPLASM MALIGNANT
     Route: 048
     Dates: start: 20190313

REACTIONS (2)
  - Blister [None]
  - Oral mucosal blistering [None]
